FAERS Safety Report 4622860-1 (Version None)
Quarter: 2005Q1

REPORT INFORMATION
  Report Type: 
  Country: None (occurrence: None)
  Receive Date: 20050330
  Receipt Date: 20050318
  Transmission Date: 20050727
  Serious: Yes (Hospitalization, Other)
  Sender: FDA-Public Use
  Company Number: ZA-GLAXOSMITHKLINE-B0375892A

PATIENT
  Age: 31 Year
  Sex: Male
  Weight: 65 kg

DRUGS (3)
  1. COMBIVIR [Suspect]
     Dosage: 1TAB TWICE PER DAY
     Route: 048
     Dates: start: 20040727, end: 20040916
  2. EFAVIRENZ [Concomitant]
     Route: 048
     Dates: start: 20040727, end: 20040916
  3. DAPSONE [Concomitant]
     Dosage: 100MG PER DAY
     Route: 048

REACTIONS (4)
  - ANAEMIA [None]
  - CARDIAC FAILURE [None]
  - LEUKOPENIA [None]
  - NEUTROPENIA [None]
